FAERS Safety Report 7670077-9 (Version None)
Quarter: 2011Q3

REPORT INFORMATION
  Report Type: 
  Country: None (occurrence: None)
  Receive Date: 20110808
  Receipt Date: 20110804
  Transmission Date: 20111222
  Serious: No
  Sender: FDA-Public Use
  Company Number: US-PFIZER INC-2011178871

PATIENT
  Sex: Male
  Weight: 21.315 kg

DRUGS (3)
  1. TYLENOL-500 [Concomitant]
     Dosage: UNK
  2. CHILDREN'S ADVIL [Suspect]
     Indication: PYREXIA
     Dosage: 8 ML, 2X/DAY
     Dates: start: 20110804
  3. IBUPROFEN [Concomitant]
     Dosage: UNK
     Dates: start: 20110803, end: 20110803

REACTIONS (2)
  - OEDEMA PERIPHERAL [None]
  - SWELLING FACE [None]
